FAERS Safety Report 7552166-2 (Version None)
Quarter: 2011Q2

REPORT INFORMATION
  Report Type: 
  Country: None (occurrence: None)
  Receive Date: 20110616
  Receipt Date: 20030721
  Transmission Date: 20111010
  Serious: Yes (Death)
  Sender: FDA-Public Use
  Company Number: PHNU2003DE02565

PATIENT
  Sex: Male
  Weight: 103 kg

DRUGS (5)
  1. CARVEDILOL [Concomitant]
     Dosage: 50 MG, QD
     Route: 048
  2. HUMALOG [Concomitant]
     Indication: DIABETES MELLITUS
     Dosage: 74 IU, QD
     Route: 058
     Dates: start: 20030301
  3. THEOPHYLLINE [Concomitant]
     Indication: CHRONIC OBSTRUCTIVE PULMONARY DISEASE
     Dosage: 750 MG, QD
     Route: 048
  4. NORVASC [Concomitant]
     Dosage: 5 MG, QD
     Route: 048
  5. DIOVAN HCT [Suspect]
     Indication: HYPERTENSION
     Dosage: 1 DF, QD
     Route: 048
     Dates: start: 20030317

REACTIONS (4)
  - SEPSIS [None]
  - ARRHYTHMIA [None]
  - CIRCULATORY COLLAPSE [None]
  - ASPIRATION [None]
